FAERS Safety Report 15051740 (Version 2)
Quarter: 2018Q3

REPORT INFORMATION
  Report Type: Spontaneous
  Country: US (occurrence: US)
  Receive Date: 20180622
  Receipt Date: 20180709
  Transmission Date: 20181010
  Serious: No
  Sender: FDA-Public Use
  Company Number: US-ASTRAZENECA-2018SE76945

PATIENT
  Age: 20655 Day
  Sex: Female
  Weight: 97.5 kg

DRUGS (9)
  1. ATENOLOL. [Suspect]
     Active Substance: ATENOLOL
     Route: 048
  2. VITAMIN D3 [Concomitant]
     Active Substance: CHOLECALCIFEROL
     Route: 048
  3. LITHIUM CARBONATE. [Concomitant]
     Active Substance: LITHIUM CARBONATE
     Route: 048
  4. LISINOPRIL. [Suspect]
     Active Substance: LISINOPRIL
     Route: 048
  5. PALIPERIDONE. [Concomitant]
     Active Substance: PALIPERIDONE
     Route: 048
  6. TUDORZA PRESSAIR [Suspect]
     Active Substance: ACLIDINIUM BROMIDE
     Indication: COUGH
     Route: 055
     Dates: start: 20171227
  7. VENTOLIN [Concomitant]
     Active Substance: ALBUTEROL SULFATE
     Route: 055
  8. LEVOTHYROXINE. [Concomitant]
     Active Substance: LEVOTHYROXINE
     Route: 048
  9. FLOVENT [Concomitant]
     Active Substance: FLUTICASONE PROPIONATE
     Route: 055

REACTIONS (5)
  - Off label use [Unknown]
  - Device failure [Unknown]
  - Drug dose omission [Unknown]
  - Cough [Unknown]
  - Product use in unapproved indication [Unknown]

NARRATIVE: CASE EVENT DATE: 20180602
